FAERS Safety Report 16726098 (Version 1)
Quarter: 2019Q3

REPORT INFORMATION
  Report Type: Spontaneous
  Country: GB (occurrence: GB)
  Receive Date: 20190821
  Receipt Date: 20190821
  Transmission Date: 20191005
  Serious: Yes (Hospitalization)
  Sender: FDA-Public Use
  Company Number: GB-TEVA-2019-GB-1094481

PATIENT
  Age: 75 Year
  Sex: Female

DRUGS (6)
  1. CARBOCISTEINE [Concomitant]
     Active Substance: CARBOCYSTEINE
     Route: 065
  2. OMEPRAZOLE. [Concomitant]
     Active Substance: OMEPRAZOLE
     Route: 065
  3. TRIMBOW [Concomitant]
     Active Substance: BECLOMETHASONE DIPROPIONATE\FORMOTEROL FUMARATE\GLYCOPYRROLATE
     Route: 065
  4. NITROFURANTOIN. [Suspect]
     Active Substance: NITROFURANTOIN
     Indication: URINARY TRACT INFECTION
     Dosage: 400 MILLIGRAM FOR EVERY 1 DAY
     Route: 048
     Dates: start: 20190529, end: 20190531
  5. SALBUTAMOL [Concomitant]
     Active Substance: ALBUTEROL
     Route: 065
  6. CARBIMAZOLE [Concomitant]
     Active Substance: CARBIMAZOLE
     Route: 065

REACTIONS (6)
  - Accidental overdose [Unknown]
  - Nystagmus [Recovered/Resolved]
  - Nausea [Recovered/Resolved]
  - Dizziness [Recovered/Resolved]
  - Abdominal pain [Recovered/Resolved]
  - Headache [Recovered/Resolved]
